FAERS Safety Report 6065917-3 (Version None)
Quarter: 2009Q1

REPORT INFORMATION
  Report Type: 
  Country: None (occurrence: None)
  Receive Date: 20090205
  Receipt Date: 20090202
  Transmission Date: 20090719
  Serious: Yes (Hospitalization)
  Sender: FDA-Public Use
  Company Number: US-BIOGENIDEC-2008BI005595

PATIENT
  Age: 40 Year
  Sex: Female
  Weight: 99 kg

DRUGS (3)
  1. AVONEX [Suspect]
     Indication: MULTIPLE SCLEROSIS
     Route: 030
     Dates: start: 20030801, end: 20031217
  2. AVONEX [Suspect]
     Route: 030
     Dates: start: 20040107, end: 20071216
  3. AVONEX [Suspect]
     Route: 030
     Dates: start: 20080408

REACTIONS (3)
  - DIPLOPIA [None]
  - LOSS OF CONTROL OF LEGS [None]
  - MULTIPLE SCLEROSIS RELAPSE [None]
